FAERS Safety Report 25751009 (Version 2)
Quarter: 2025Q3

REPORT INFORMATION
  Report Type: Spontaneous
  Country: EU (occurrence: EU)
  Receive Date: 20250902
  Receipt Date: 20250904
  Transmission Date: 20251020
  Serious: Yes (Life-Threatening, Hospitalization, Other)
  Sender: GILEAD
  Company Number: EU-GILEAD-2025-0726515

PATIENT
  Age: 80 Year
  Sex: Female
  Weight: 60 kg

DRUGS (1)
  1. TRODELVY [Suspect]
     Active Substance: SACITUZUMAB GOVITECAN-HZIY
     Indication: Triple negative breast cancer
     Route: 042
     Dates: start: 20250731, end: 20250807

REACTIONS (4)
  - Neutropenia [Recovering/Resolving]
  - Thrombocytopenia [Not Recovered/Not Resolved]
  - Diarrhoea [Recovered/Resolved]
  - Brain oedema [Not Recovered/Not Resolved]

NARRATIVE: CASE EVENT DATE: 20250808
